FAERS Safety Report 9749206 (Version 1)
Quarter: 2013Q4

REPORT INFORMATION
  Report Type: Spontaneous
  Country: US (occurrence: US)
  Receive Date: 20131212
  Receipt Date: 20131212
  Transmission Date: 20140711
  Serious: No
  Sender: FDA-Public Use
  Company Number: US-TEVA-392001USA

PATIENT
  Age: 39 Year
  Sex: Female
  Weight: 64.47 kg

DRUGS (2)
  1. PARAGARD 380A [Suspect]
     Indication: CONTRACEPTION
     Route: 015
     Dates: start: 200801, end: 20130313
  2. VENTOLIN [Concomitant]
     Indication: ASTHMA
     Dates: start: 1987

REACTIONS (1)
  - Polymenorrhoea [Unknown]
